FAERS Safety Report 5418575-2 (Version None)
Quarter: 2007Q3

REPORT INFORMATION
  Report Type: 
  Country: None (occurrence: None)
  Receive Date: 20070817
  Receipt Date: 20070808
  Transmission Date: 20080115
  Serious: Yes (Disabling, Other)
  Sender: FDA-Public Use
  Company Number: GB-ABBOTT-07P-167-0377162-00

PATIENT
  Sex: Female

DRUGS (1)
  1. FENOFIBRATE [Suspect]
     Indication: TYPE III HYPERLIPIDAEMIA
     Route: 048
     Dates: start: 19970101, end: 20040101

REACTIONS (3)
  - BLISTER [None]
  - RASH [None]
  - SCAR [None]
